FAERS Safety Report 8949524 (Version 4)
Quarter: 2013Q4

REPORT INFORMATION
  Report Type: Spontaneous
  Country: LT (occurrence: LT)
  Receive Date: 20121206
  Receipt Date: 20131016
  Transmission Date: 20140711
  Serious: Yes (Hospitalization, Other)
  Sender: FDA-Public Use
  Company Number: LT-JNJFOC-20121114292

PATIENT
  Age: 4 Decade
  Sex: Female

DRUGS (12)
  1. XEPLION [Suspect]
     Indication: SCHIZOPHRENIA
     Route: 030
     Dates: start: 20121114
  2. XEPLION [Suspect]
     Indication: SCHIZOPHRENIA
     Route: 030
     Dates: start: 20121214
  3. XEPLION [Suspect]
     Indication: SCHIZOPHRENIA
     Route: 030
  4. XEPLION [Suspect]
     Indication: SCHIZOPHRENIA
     Route: 030
     Dates: start: 20121107
  5. RISPOLEPT CONSTA [Suspect]
     Indication: PRODUCT USED FOR UNKNOWN INDICATION
     Route: 030
  6. OLANZAPINE [Suspect]
     Indication: SCHIZOPHRENIA
     Route: 065
  7. OLANZAPINE [Suspect]
     Indication: SCHIZOPHRENIA
     Route: 065
     Dates: start: 20121114
  8. OLANZAPINE [Suspect]
     Indication: SCHIZOPHRENIA
     Route: 065
     Dates: start: 201306
  9. OLANZAPINE [Suspect]
     Indication: SCHIZOPHRENIA
     Route: 065
     Dates: start: 20121107
  10. VALPROIC ACID [Concomitant]
     Route: 065
     Dates: start: 20121214
  11. VALPROIC ACID [Concomitant]
     Route: 065
     Dates: start: 20121120, end: 20121214
  12. IMOVANE [Concomitant]
     Indication: PRODUCT USED FOR UNKNOWN INDICATION
     Route: 065
     Dates: start: 20121120

REACTIONS (4)
  - Schizophrenia [Not Recovered/Not Resolved]
  - Obsessive thoughts [Recovered/Resolved]
  - Insomnia [Recovered/Resolved]
  - Incoherent [Unknown]
